FAERS Safety Report 4508059-8 (Version None)
Quarter: 2004Q4

REPORT INFORMATION
  Report Type: 
  Country: None (occurrence: None)
  Receive Date: 20041123
  Receipt Date: 20031006
  Transmission Date: 20050328
  Serious: No
  Sender: FDA-Public Use
  Company Number: US-GLAXOSMITHKLINE-A0428949A

PATIENT
  Age: 25 Year
  Sex: Female

DRUGS (5)
  1. WELLBUTRIN [Suspect]
     Indication: DEPRESSION
     Dosage: 150MG TWICE PER DAY
     Route: 048
     Dates: start: 20030601, end: 20031005
  2. ZOLOFT [Concomitant]
  3. STRATTERA [Concomitant]
  4. RISPERDAL [Concomitant]
  5. ALPRAZOLAM [Concomitant]

REACTIONS (7)
  - ABNORMAL FAECES [None]
  - DIZZINESS [None]
  - FLATULENCE [None]
  - NAUSEA [None]
  - PHARMACEUTICAL PRODUCT COMPLAINT [None]
  - STOOLS WATERY [None]
  - TREMOR [None]
